FAERS Safety Report 15191364 (Version 1)
Quarter: 2018Q3

REPORT INFORMATION
  Report Type: Spontaneous
  Country: IN (occurrence: IN)
  Receive Date: 20180724
  Receipt Date: 20180724
  Transmission Date: 20181010
  Serious: Yes (Other)
  Sender: FDA-Public Use
  Company Number: IN-JNJFOC-20180720550

PATIENT
  Age: 68 Year
  Sex: Male
  Weight: 63 kg

DRUGS (2)
  1. IBRUTINIB [Suspect]
     Active Substance: IBRUTINIB
     Indication: CHRONIC LYMPHOCYTIC LEUKAEMIA REFRACTORY
     Route: 048
     Dates: start: 20160630, end: 20160704
  2. IBRUTINIB [Suspect]
     Active Substance: IBRUTINIB
     Indication: CHRONIC LYMPHOCYTIC LEUKAEMIA REFRACTORY
     Route: 048
     Dates: start: 201705

REACTIONS (7)
  - Ecchymosis [Unknown]
  - Abdominal pain [Recovered/Resolved]
  - Thrombosis [Unknown]
  - Cough [Recovered/Resolved]
  - Pyrexia [Unknown]
  - Drug intolerance [Unknown]
  - Gingival bleeding [Recovered/Resolved]

NARRATIVE: CASE EVENT DATE: 20160702
